FAERS Safety Report 9904744 (Version 1)
Quarter: 2014Q1

REPORT INFORMATION
  Report Type: Spontaneous
  Country: US (occurrence: US)
  Receive Date: 20140218
  Receipt Date: 20140218
  Transmission Date: 20141002
  Serious: No
  Sender: FDA-Public Use
  Company Number: US-ENDO PHARMACEUTICALS INC.-METO20130017

PATIENT
  Sex: Female

DRUGS (2)
  1. METOCLOPRAMIDE HYDROCHLORIDE [Suspect]
     Indication: ABDOMINAL DISTENSION
     Dosage: UNK
     Route: 048
     Dates: start: 199003, end: 200306
  2. METOCLOPRAMIDE HYDROCHLORIDE [Suspect]
     Indication: DYSPEPSIA

REACTIONS (2)
  - Tardive dyskinesia [Unknown]
  - Incorrect drug administration duration [Recovered/Resolved]
